FAERS Safety Report 10463242 (Version 2)
Quarter: 2014Q4

REPORT INFORMATION
  Report Type: Report from Study
  Country: US (occurrence: US)
  Receive Date: 20140919
  Receipt Date: 20141017
  Transmission Date: 20150528
  Serious: Yes (Other)
  Sender: FDA-Public Use
  Company Number: US-BIOGENIDEC-2014BI095240

PATIENT
  Age: 53 Year
  Sex: Male

DRUGS (1)
  1. TECFIDERA [Suspect]
     Active Substance: DIMETHYL FUMARATE
     Indication: MULTIPLE SCLEROSIS
     Route: 048
     Dates: start: 201406, end: 201408

REACTIONS (10)
  - Decreased appetite [Unknown]
  - Asthenia [Unknown]
  - Flushing [Unknown]
  - Nausea [Unknown]
  - Gastric disorder [Unknown]
  - Weight decreased [Unknown]
  - Fatigue [Unknown]
  - Drug intolerance [Unknown]
  - Vomiting [Unknown]
  - Abdominal pain upper [Unknown]

NARRATIVE: CASE EVENT DATE: 201408
